FAERS Safety Report 25899119 (Version 2)
Quarter: 2025Q4

REPORT INFORMATION
  Report Type: Spontaneous
  Country: EU (occurrence: EU)
  Receive Date: 20251009
  Receipt Date: 20251104
  Transmission Date: 20260118
  Serious: Yes (Other)
  Sender: IDORSIA PHARMACEUTICALS
  Company Number: EU-IDORSIA-012056-2025-FR

PATIENT
  Age: 69 Year
  Sex: Female

DRUGS (5)
  1. QUVIVIQ [Suspect]
     Active Substance: DARIDOREXANT
     Indication: Insomnia
     Dosage: 50 MG, QD
     Route: 048
     Dates: start: 202503
  2. QUETIAPINE [Concomitant]
     Active Substance: QUETIAPINE
     Indication: Depression
     Dosage: 50 MG, QD
     Dates: start: 202509
  3. MIANSERIN [Concomitant]
     Active Substance: MIANSERIN
     Indication: Depression
     Dosage: 60 MG, QD
     Dates: start: 202509
  4. MIANSERIN [Concomitant]
     Active Substance: MIANSERIN
     Indication: Insomnia
     Dosage: 90 MG, QD
  5. LAMICTAL [Concomitant]
     Active Substance: LAMOTRIGINE
     Dosage: 25 MG

REACTIONS (2)
  - Suicidal ideation [Recovering/Resolving]
  - Mixed anxiety and depressive disorder [Recovering/Resolving]

NARRATIVE: CASE EVENT DATE: 20250901
